FAERS Safety Report 5318438-7 (Version None)
Quarter: 2007Q2

REPORT INFORMATION
  Report Type: 
  Country: None (occurrence: None)
  Receive Date: 20070430
  Receipt Date: 20070420
  Transmission Date: 20071010
  Serious: Yes (Other)
  Sender: FDA-Public Use
  Company Number: 2007SP006939

PATIENT
  Age: 59 Year
  Sex: Male

DRUGS (5)
  1. TEMODAL [Suspect]
     Indication: BRAIN NEOPLASM
     Dosage: 410 MG; QD; PO
     Route: 048
     Dates: start: 20060802, end: 20070412
  2. PREDNISOLON /00016201/ [Concomitant]
  3. LAMICTAL [Concomitant]
  4. KEPPRA [Concomitant]
  5. LANSOPRAZOLE [Concomitant]

REACTIONS (3)
  - IMPAIRED WORK ABILITY [None]
  - NEOPLASM PROGRESSION [None]
  - POLYNEUROPATHY [None]
